FAERS Safety Report 7314700-7 (Version None)
Quarter: 2011Q1

REPORT INFORMATION
  Report Type: 
  Country: None (occurrence: None)
  Receive Date: 20110225
  Receipt Date: 20101108
  Transmission Date: 20110831
  Serious: No
  Sender: FDA-Public Use
  Company Number: US-MYLANLABS-2010S1020889

PATIENT
  Age: 54 Year
  Sex: Female
  Weight: 83.92 kg

DRUGS (2)
  1. CLARAVIS [Suspect]
     Indication: ACNE
     Route: 048
     Dates: end: 20100927
  2. AMNESTEEM [Suspect]
     Indication: ACNE
     Route: 048
     Dates: start: 20100723, end: 20100823

REACTIONS (4)
  - CHEST PAIN [None]
  - ARTHRALGIA [None]
  - GASTRIC DISORDER [None]
  - DEPRESSION [None]
